FAERS Safety Report 8446655-6 (Version None)
Quarter: 2012Q2

REPORT INFORMATION
  Report Type: 
  Country: None (occurrence: None)
  Receive Date: 20120619
  Receipt Date: 20120611
  Transmission Date: 20120825
  Serious: No
  Sender: FDA-Public Use
  Company Number: US-BIOGENIDEC-2012BI018757

PATIENT
  Age: 58 Year
  Sex: Female

DRUGS (2)
  1. AVONEX [Concomitant]
     Indication: MULTIPLE SCLEROSIS
     Route: 030
     Dates: start: 19960401
  2. TYSABRI [Suspect]
     Indication: MULTIPLE SCLEROSIS
     Route: 042
     Dates: start: 20120524

REACTIONS (10)
  - DYSPNOEA [None]
  - SENSORY DISTURBANCE [None]
  - ABDOMINAL PAIN UPPER [None]
  - PAIN IN EXTREMITY [None]
  - MUSCLE SPASMS [None]
  - INFLUENZA [None]
  - NAUSEA [None]
  - PAIN [None]
  - CHEST PAIN [None]
  - HEADACHE [None]
